FAERS Safety Report 13886072 (Version 8)
Quarter: 2017Q4

REPORT INFORMATION
  Report Type: Report from Study
  Country: TW (occurrence: TW)
  Receive Date: 20170821
  Receipt Date: 20171010
  Transmission Date: 20180320
  Serious: Yes (Hospitalization, Other)
  Sender: FDA-Public Use
  Company Number: PHHY2017TW122668

PATIENT
  Age: 46 Year
  Sex: Male
  Weight: 80 kg

DRUGS (3)
  1. COSENTYX [Suspect]
     Active Substance: SECUKINUMAB
     Indication: PSORIASIS
     Dosage: 300 MG, QW
     Route: 058
     Dates: start: 20170405, end: 20170426
  2. COSENTYX [Suspect]
     Active Substance: SECUKINUMAB
     Dosage: 300 MG, QMO
     Route: 058
     Dates: start: 20170503, end: 20170705
  3. COSENTYX [Suspect]
     Active Substance: SECUKINUMAB
     Dosage: 300 MG, UNK
     Route: 058
     Dates: start: 20170912

REACTIONS (9)
  - Urinary tract infection [Unknown]
  - Upper respiratory tract infection [Recovered/Resolved]
  - Ureterolithiasis [Recovered/Resolved]
  - Influenza [Recovered/Resolved]
  - Pyelonephritis acute [Recovered/Resolved]
  - Urinary tract obstruction [Recovered/Resolved]
  - Ureteral polyp [Recovered/Resolved]
  - Candida infection [Recovered/Resolved]
  - Pyrexia [Not Recovered/Not Resolved]

NARRATIVE: CASE EVENT DATE: 20170406
